FAERS Safety Report 8884617 (Version 1)
Quarter: 2012Q4

REPORT INFORMATION
  Report Type: 
  Country: US (occurrence: US)
  Receive Date: 20121102
  Receipt Date: 20121102
  Transmission Date: 20130627
  Serious: Yes (Other)
  Sender: FDA-Public Use
  Company Number: US-PFIZER INC-2012272855

PATIENT
  Age: 62 Year
  Sex: Female
  Weight: 83.9 kg

DRUGS (4)
  1. DILANTIN [Suspect]
     Indication: SEIZURES
     Dosage: 100 mg, 3x/day
     Route: 048
  2. PAXIL [Concomitant]
     Indication: ANXIETY
     Dosage: UNK
  3. XANAX [Concomitant]
     Indication: ANXIETY
     Dosage: UNK
  4. VISTARIL [Concomitant]
     Dosage: 25 mg, UNK

REACTIONS (2)
  - Leukaemia [Not Recovered/Not Resolved]
  - Blood count abnormal [Unknown]
